FAERS Safety Report 5918262-8 (Version None)
Quarter: 2008Q4

REPORT INFORMATION
  Report Type: 
  Country: None (occurrence: None)
  Receive Date: 20081014
  Receipt Date: 20081008
  Transmission Date: 20090506
  Serious: Yes (Other)
  Sender: FDA-Public Use
  Company Number: US-GILEAD-2008-0017423

PATIENT
  Sex: Female
  Weight: 68.1 kg

DRUGS (13)
  1. LETAIRIS [Suspect]
     Indication: PULMONARY ARTERIAL HYPERTENSION
     Route: 048
     Dates: start: 20080516, end: 20080710
  2. VIAGRA [Concomitant]
     Route: 048
  3. FLOLAN [Concomitant]
     Route: 042
  4. SPIRONOLACTONE [Concomitant]
     Route: 048
  5. AMILORIDE HYDROCHLORIDE [Concomitant]
     Route: 048
  6. BUMEX [Concomitant]
     Route: 048
  7. METOLAZONE [Concomitant]
     Route: 048
  8. NEXIUM [Concomitant]
     Route: 048
  9. AMBIEN [Concomitant]
     Route: 048
  10. COUMADIN [Concomitant]
     Route: 048
  11. ZOLOFT [Concomitant]
     Route: 048
  12. IMODIUM [Concomitant]
     Route: 048
  13. K-DUR [Concomitant]
     Route: 048

REACTIONS (4)
  - ABDOMINAL PAIN UPPER [None]
  - CONSTIPATION [None]
  - FLUSHING [None]
  - RIGHT VENTRICULAR FAILURE [None]
